FAERS Safety Report 22873043 (Version 2)
Quarter: 2023Q4

REPORT INFORMATION
  Report Type: Other
  Country: GB (occurrence: None)
  Receive Date: 20230828
  Receipt Date: 20231110
  Transmission Date: 20240110
  Serious: Yes (Other)
  Sender: FDA-Public Use
  Company Number: GB-ROCHE-3410522

PATIENT
  Sex: Female

DRUGS (3)
  1. TOCILIZUMAB [Suspect]
     Active Substance: TOCILIZUMAB
     Indication: Giant cell arteritis
     Route: 058
     Dates: start: 20230802
  2. PREDNISOLONE [Concomitant]
     Active Substance: PREDNISOLONE
  3. LANSOPRAZOLE [Concomitant]
     Active Substance: LANSOPRAZOLE

REACTIONS (5)
  - Vasculitis [Unknown]
  - Neck mass [Unknown]
  - Abdominal distension [Unknown]
  - Weight increased [Unknown]
  - Swelling [Unknown]
